FAERS Safety Report 24575743 (Version 1)
Quarter: 2024Q4

REPORT INFORMATION
  Report Type: Spontaneous
  Country: TZ (occurrence: TZ)
  Receive Date: 20241104
  Receipt Date: 20241104
  Transmission Date: 20250115
  Serious: Yes (Death, Hospitalization, Other)
  Sender: EXELA PHARMA SCIENCES
  Company Number: TZ-EXELAPHARMA-2024EXLA00032

PATIENT
  Age: 37 Year
  Sex: Female

DRUGS (1)
  1. TRANEXAMIC ACID [Suspect]
     Active Substance: TRANEXAMIC ACID
     Indication: Product used for unknown indication
     Route: 037

REACTIONS (14)
  - Cardiac arrest [Fatal]
  - Muscle discomfort [Unknown]
  - Chest discomfort [Unknown]
  - Acute kidney injury [Unknown]
  - Agitation [Unknown]
  - Mental status changes [Unknown]
  - Generalised tonic-clonic seizure [Unknown]
  - Hypertension [Unknown]
  - Tachycardia [Unknown]
  - Incorrect route of product administration [Fatal]
  - Wrong product administered [Fatal]
  - Exposure during pregnancy [Unknown]
  - Back pain [Unknown]
  - Pruritus [Unknown]
